FAERS Safety Report 14537861 (Version 1)
Quarter: 2018Q1

REPORT INFORMATION
  Report Type: Spontaneous
  Country: US (occurrence: US)
  Receive Date: 20180216
  Receipt Date: 20180216
  Transmission Date: 20180509
  Serious: No
  Sender: FDA-Public Use
  Company Number: US-SHIRE-US201805880

PATIENT
  Sex: Female

DRUGS (1)
  1. XIIDRA [Suspect]
     Active Substance: LIFITEGRAST
     Indication: DRY EYE

REACTIONS (5)
  - Instillation site reaction [Unknown]
  - Instillation site erythema [Unknown]
  - Ocular hyperaemia [Unknown]
  - Instillation site irritation [Unknown]
  - Vision blurred [Unknown]
